FAERS Safety Report 23426969 (Version 3)
Quarter: 2025Q3

REPORT INFORMATION
  Report Type: Spontaneous
  Country: JP (occurrence: JP)
  Receive Date: 20240122
  Receipt Date: 20250803
  Transmission Date: 20251021
  Serious: Yes (Death, Hospitalization, Other)
  Sender: ALEXION PHARMACEUTICALS
  Company Number: 2023A295862

PATIENT
  Sex: Male

DRUGS (4)
  1. IMFINZI [Suspect]
     Active Substance: DURVALUMAB
  2. IMFINZI [Suspect]
     Active Substance: DURVALUMAB
  3. IMJUDO [Suspect]
     Active Substance: TREMELIMUMAB\TREMELIMUMAB-ACTL
  4. ADRENAL [Concomitant]
     Active Substance: EPINEPHRINE

REACTIONS (2)
  - Diarrhoea [Recovered/Resolved]
  - Spontaneous bacterial peritonitis [Fatal]

NARRATIVE: CASE EVENT DATE: 20231121
